FAERS Safety Report 9978992 (Version 1)
Quarter: 2014Q1

REPORT INFORMATION
  Report Type: Report from Study
  Country: US (occurrence: US)
  Receive Date: 20140306
  Receipt Date: 20140306
  Transmission Date: 20141002
  Serious: No
  Sender: FDA-Public Use
  Company Number: US-ABBVIE-13P-163-1169513-00

PATIENT
  Age: 57 Year
  Sex: Female
  Weight: 68.1 kg

DRUGS (7)
  1. HUMIRA [Suspect]
     Indication: COLITIS ULCERATIVE
     Dates: start: 201310, end: 201310
  2. HUMIRA [Suspect]
     Dosage: TWO WEEKS AFTER 160 MG DOSE
     Dates: start: 2013, end: 2013
  3. HUMIRA [Suspect]
     Dosage: STARTED FOUR WEEKS AFTER 160 MG DOSE
     Dates: start: 201311
  4. HORMONE MEDICATION [Concomitant]
     Indication: HORMONE REPLACEMENT THERAPY
  5. LEVOTHYROXINE [Concomitant]
     Indication: HYPOTHYROIDISM
  6. BUPROPION [Concomitant]
     Indication: DEPRESSION
  7. ALPRAZOLAM [Concomitant]
     Indication: ANXIETY
     Dates: start: 201310, end: 201311

REACTIONS (10)
  - Vasodilatation [Not Recovered/Not Resolved]
  - Contusion [Not Recovered/Not Resolved]
  - Angiopathy [Not Recovered/Not Resolved]
  - Heart rate increased [Not Recovered/Not Resolved]
  - Erythema [Not Recovered/Not Resolved]
  - Respiratory rate increased [Not Recovered/Not Resolved]
  - Tremor [Not Recovered/Not Resolved]
  - Anxiety [Not Recovered/Not Resolved]
  - Agitation [Not Recovered/Not Resolved]
  - Panic attack [Not Recovered/Not Resolved]
